FAERS Safety Report 7816651-8 (Version None)
Quarter: 2011Q4

REPORT INFORMATION
  Report Type: 
  Country: None (occurrence: None)
  Receive Date: 20111017
  Receipt Date: 20111007
  Transmission Date: 20120403
  Serious: Yes (Hospitalization, Other)
  Sender: FDA-Public Use
  Company Number: IE-US-EMD SERONO, INC.-7088820

PATIENT
  Sex: Male

DRUGS (1)
  1. REBIF [Suspect]
     Indication: RELAPSING-REMITTING MULTIPLE SCLEROSIS
     Route: 058
     Dates: start: 20070315

REACTIONS (4)
  - MUSCULAR WEAKNESS [None]
  - SENSATION OF HEAVINESS [None]
  - MUSCLE SPASMS [None]
  - DIABETES MELLITUS [None]
